FAERS Safety Report 7170988-7 (Version None)
Quarter: 2010Q4

REPORT INFORMATION
  Report Type: 
  Country: None (occurrence: None)
  Receive Date: 20101217
  Receipt Date: 20101209
  Transmission Date: 20110411
  Serious: Yes (Disabling)
  Sender: FDA-Public Use
  Company Number: US-MERCK-1012USA01906

PATIENT
  Sex: Male

DRUGS (1)
  1. FOSAMAX [Suspect]
     Route: 048
     Dates: start: 20040701, end: 20090101

REACTIONS (1)
  - FEMUR FRACTURE [None]
